FAERS Safety Report 6065175-X (Version None)
Quarter: 2009Q1

REPORT INFORMATION
  Report Type: 
  Country: None (occurrence: None)
  Receive Date: 20090130
  Receipt Date: 20090120
  Transmission Date: 20090719
  Serious: No
  Sender: FDA-Public Use
  Company Number: 20096126

PATIENT
  Sex: Male

DRUGS (1)
  1. BACLOFEN [Suspect]
     Indication: MUSCLE SPASTICITY
     Dosage: 265 MCG, DAILY, INTRATHECAL
     Route: 037
     Dates: start: 20070330

REACTIONS (4)
  - ABDOMINAL DISCOMFORT [None]
  - DEVICE LEAKAGE [None]
  - SKIN ATROPHY [None]
  - SKIN SWELLING [None]
